FAERS Safety Report 9888215 (Version 1)
Quarter: 2014Q1

REPORT INFORMATION
  Report Type: Spontaneous
  Country: US (occurrence: US)
  Receive Date: 20140211
  Receipt Date: 20140211
  Transmission Date: 20141002
  Serious: No
  Sender: FDA-Public Use
  Company Number: US-009507513-1402USA003356

PATIENT
  Sex: 0

DRUGS (2)
  1. JANUMET XR [Suspect]
     Route: 048
  2. JANUMET [Suspect]
     Route: 048

REACTIONS (1)
  - Glycosylated haemoglobin increased [Unknown]
